FAERS Safety Report 5356962-1 (Version None)
Quarter: 2007Q2

REPORT INFORMATION
  Report Type: 
  Country: None (occurrence: None)
  Receive Date: 20070614
  Receipt Date: 20070612
  Transmission Date: 20071010
  Serious: Yes (Death, Hospitalization)
  Sender: FDA-Public Use
  Company Number: FR-BRISTOL-MYERS SQUIBB COMPANY-13509237

PATIENT
  Age: 85 Year
  Sex: Male

DRUGS (6)
  1. PARAPLATIN [Suspect]
     Route: 042
     Dates: start: 20060517, end: 20060705
  2. TAXOL [Suspect]
     Route: 042
     Dates: start: 20060517, end: 20060705
  3. LASIX [Concomitant]
  4. POTASSIUM CHLORIDE [Concomitant]
  5. CORDARONE [Concomitant]
     Dates: start: 20060601, end: 20060815
  6. PLAVIX [Concomitant]

REACTIONS (1)
  - PULMONARY FIBROSIS [None]
